FAERS Safety Report 14826079 (Version 2)
Quarter: 2018Q2

REPORT INFORMATION
  Report Type: Report from Study
  Country: MX (occurrence: MX)
  Receive Date: 20180430
  Receipt Date: 20180521
  Transmission Date: 20180711
  Serious: Yes (Death, Hospitalization, Other)
  Sender: FDA-Public Use
  Company Number: MX-AMGEN-MEXSL2018057856

PATIENT
  Age: 57 Year
  Sex: Female
  Weight: 65 kg

DRUGS (4)
  1. 5 FU [Concomitant]
     Active Substance: FLUOROURACIL
     Indication: PALLIATIVE CARE
     Dosage: UNK
     Dates: start: 20171122
  2. OXALIPLATIN. [Concomitant]
     Active Substance: OXALIPLATIN
     Indication: PALLIATIVE CARE
     Dosage: UNK
     Dates: start: 20171122, end: 2018
  3. FOLINIC ACID [Concomitant]
     Active Substance: LEUCOVORIN
     Indication: PALLIATIVE CARE
     Dosage: UNK
     Dates: start: 20171122
  4. VECTIBIX [Suspect]
     Active Substance: PANITUMUMAB
     Indication: RECTAL ADENOCARCINOMA
     Dosage: UNK
     Route: 065
     Dates: start: 20180131

REACTIONS (4)
  - Urinary tract infection [Fatal]
  - Epistaxis [Fatal]
  - Malignant neoplasm progression [Unknown]
  - Vaginal haemorrhage [Fatal]

NARRATIVE: CASE EVENT DATE: 2018
